FAERS Safety Report 12782390 (Version 1)
Quarter: 2016Q3

REPORT INFORMATION
  Report Type: Spontaneous
  Country: US (occurrence: US)
  Receive Date: 20160927
  Receipt Date: 20160927
  Transmission Date: 20161109
  Serious: Yes (Other)
  Sender: FDA-Public Use
  Company Number: None

PATIENT
  Sex: Female
  Weight: 77.11 kg

DRUGS (1)
  1. H.P. ACTHAR [Suspect]
     Active Substance: CORTICOTROPIN
     Indication: RHEUMATOID ARTHRITIS
     Dosage: ACTHAR 80 UNITS 2X WEEKLY SUBCUTANEOUSLY
     Route: 058
     Dates: start: 201607, end: 201608

REACTIONS (2)
  - Dizziness [None]
  - Feeling abnormal [None]
